FAERS Safety Report 9808049 (Version 2)
Quarter: 2014Q1

REPORT INFORMATION
  Report Type: Spontaneous
  Country: US (occurrence: US)
  Receive Date: 20140110
  Receipt Date: 20140127
  Transmission Date: 20141002
  Serious: Yes (Other)
  Sender: FDA-Public Use
  Company Number: US-GLAXOSMITHKLINE-A1055892A

PATIENT
  Age: 56 Year
  Sex: Female

DRUGS (1)
  1. ARIXTRA [Suspect]
     Indication: THROMBOSIS PROPHYLAXIS
     Dosage: 7.5MG UNKNOWN
     Route: 065
     Dates: start: 20101227

REACTIONS (2)
  - Lung operation [Unknown]
  - Lymphadenectomy [Unknown]
